FAERS Safety Report 21448624 (Version 1)
Quarter: 2022Q4

REPORT INFORMATION
  Report Type: Spontaneous
  Country: US (occurrence: US)
  Receive Date: 20221013
  Receipt Date: 20221013
  Transmission Date: 20230113
  Serious: Yes (Other)
  Sender: FDA-Public Use
  Company Number: US-SUN PHARMACEUTICAL INDUSTRIES LTD-2022R1-358276

PATIENT
  Sex: Male

DRUGS (2)
  1. BACLOFEN [Suspect]
     Active Substance: BACLOFEN
     Indication: Product used for unknown indication
     Dosage: EVERY 6 HOURS
     Route: 065
  2. TIZANIDINE [Suspect]
     Active Substance: TIZANIDINE
     Indication: Product used for unknown indication
     Dosage: EVERY 6 HOURS
     Route: 065

REACTIONS (4)
  - Hallucination [Unknown]
  - Renal cancer stage IV [Unknown]
  - Urinary incontinence [Unknown]
  - Adverse drug reaction [Unknown]
